FAERS Safety Report 24588266 (Version 2)
Quarter: 2024Q4

REPORT INFORMATION
  Report Type: Spontaneous
  Country: US (occurrence: US)
  Receive Date: 20241107
  Receipt Date: 20241209
  Transmission Date: 20250115
  Serious: No
  Sender: PHARMACOSMOS A/S
  Company Number: US-NEBO-671527

PATIENT
  Age: 95 Year
  Sex: Female
  Weight: 59 kg

DRUGS (2)
  1. MONOFERRIC [Suspect]
     Active Substance: FERRIC DERISOMALTOSE
     Indication: Product used for unknown indication
     Dates: start: 20241010, end: 20241010
  2. MONOFERRIC [Suspect]
     Active Substance: FERRIC DERISOMALTOSE
     Indication: Product used for unknown indication
     Dates: start: 20241010, end: 20241010

REACTIONS (4)
  - Infusion site pain [Recovered/Resolved]
  - Injection site extravasation [Recovered/Resolved]
  - Skin discolouration [Recovered/Resolved]
  - Product administration error [Recovered/Resolved]

NARRATIVE: CASE EVENT DATE: 20241010
